FAERS Safety Report 16284971 (Version 4)
Quarter: 2021Q3

REPORT INFORMATION
  Report Type: Other
  Country: DE (occurrence: DE)
  Receive Date: 20190508
  Receipt Date: 20210910
  Transmission Date: 20211014
  Serious: Yes (Other)
  Sender: FDA-Public Use
  Company Number: DE-ROCHE-2239868

PATIENT
  Age: 32 Year
  Sex: Female
  Weight: 46 kg

DRUGS (11)
  1. SATIVEX [Concomitant]
     Active Substance: NABIXIMOLS
     Dosage: SPRAY
  2. OCREVUS [Suspect]
     Active Substance: OCRELIZUMAB
     Dosage: SUBSEQUENT INFUSIONS: 22/OCT/2019, 20/OCT/2020 AND 16/APR/2021
     Route: 042
     Dates: start: 20190410
  3. PANTOZOL [Concomitant]
     Active Substance: PANTOPRAZOLE SODIUM
     Dosage: AS REQUIRED
  4. OCREVUS [Suspect]
     Active Substance: OCRELIZUMAB
     Indication: RELAPSING-REMITTING MULTIPLE SCLEROSIS
     Route: 042
     Dates: start: 20181012
  5. DRONABINOL. [Concomitant]
     Active Substance: DRONABINOL
     Indication: PRODUCT USED FOR UNKNOWN INDICATION
     Route: 065
  6. SIMPLEX [PASSIFLORA INCARNATA;STRYCHNOS IGNATII;VALERIANA OFFICINALIS] [Concomitant]
  7. OCREVUS [Suspect]
     Active Substance: OCRELIZUMAB
     Route: 042
     Dates: start: 20181026
  8. AQUALIBRA [Concomitant]
  9. LYRICA [Suspect]
     Active Substance: PREGABALIN
     Indication: PRODUCT USED FOR UNKNOWN INDICATION
     Dosage: 3?1?3?1?GRADUALLY DISCONTINUED
     Route: 065
  10. FAMPYRA [Concomitant]
     Active Substance: DALFAMPRIDINE
     Dosage: AS REQUIRED
  11. MIRTAZAPIN [Concomitant]
     Active Substance: MIRTAZAPINE
     Indication: NEURALGIA
     Dosage: 0?0?0?1

REACTIONS (31)
  - Menstrual disorder [Recovered/Resolved]
  - Ataxia [Recovered/Resolved]
  - Multiple sclerosis [Recovered/Resolved]
  - Nasopharyngitis [Recovered/Resolved]
  - Gastrointestinal hypermotility [Recovered/Resolved]
  - Body temperature increased [Recovered/Resolved]
  - Oral pain [Recovered/Resolved]
  - Neuralgia [Not Recovered/Not Resolved]
  - Nausea [Recovered/Resolved]
  - Body temperature increased [Recovered/Resolved]
  - Urinary tract infection [Recovered/Resolved]
  - Iron deficiency [Recovered/Resolved]
  - Abnormal loss of weight [Not Recovered/Not Resolved]
  - Multiple sclerosis relapse [Recovered/Resolved]
  - Fatigue [Recovered/Resolved]
  - Asthenia [Recovered/Resolved]
  - Gastrointestinal infection [Recovered/Resolved]
  - Blood pressure decreased [Recovered/Resolved]
  - Hypotension [Unknown]
  - Pain [Not Recovered/Not Resolved]
  - Oral mucosal erythema [Recovered/Resolved]
  - Cardiovascular insufficiency [Recovered/Resolved]
  - Sensory disturbance [Recovered/Resolved]
  - Toxicity to various agents [Recovered/Resolved]
  - Fatigue [Recovered/Resolved]
  - Leukopenia [Recovered/Resolved]
  - Headache [Recovered/Resolved]
  - Muscle spasticity [Not Recovered/Not Resolved]
  - Heart rate increased [Recovered/Resolved]
  - Heavy menstrual bleeding [Not Recovered/Not Resolved]
  - Muscular weakness [Recovering/Resolving]

NARRATIVE: CASE EVENT DATE: 20181012
